FAERS Safety Report 7833945-0 (Version None)
Quarter: 2011Q4

REPORT INFORMATION
  Report Type: 
  Country: None (occurrence: None)
  Receive Date: 20111020
  Receipt Date: 20111006
  Transmission Date: 20120403
  Serious: Yes (Other)
  Sender: FDA-Public Use
  Company Number: 2011MA014929

PATIENT
  Age: 43 Year
  Sex: Female

DRUGS (1)
  1. PROPYLTHIOURACIL [Suspect]
     Indication: BASEDOW'S DISEASE
     Dosage: 300 MG; QDF

REACTIONS (11)
  - ANTINEUTROPHIL CYTOPLASMIC ANTIBODY POSITIVE [None]
  - SKIN TEST POSITIVE [None]
  - LEUKOCYTOCLASTIC VASCULITIS [None]
  - DERMATITIS BULLOUS [None]
  - ULCER [None]
  - ANTIPHOSPHOLIPID SYNDROME [None]
  - OEDEMA PERIPHERAL [None]
  - ASTHENIA [None]
  - RED BLOOD CELL SEDIMENTATION RATE INCREASED [None]
  - MALAISE [None]
  - BASEDOW'S DISEASE [None]
